FAERS Safety Report 5466594-2 (Version None)
Quarter: 2007Q3

REPORT INFORMATION
  Report Type: 
  Country: None (occurrence: None)
  Receive Date: 20070925
  Receipt Date: 20070919
  Transmission Date: 20080115
  Serious: Yes (Hospitalization, Other)
  Sender: FDA-Public Use
  Company Number: PHBS2007AT12538

PATIENT
  Age: 81 Year
  Sex: Male

DRUGS (3)
  1. DIOVAN HCT [Suspect]
     Dosage: UNK, UNK
  2. DIOVAN [Suspect]
     Dosage: UNK, BID
  3. NORVASC [Concomitant]
     Dosage: 5 MG, UNK

REACTIONS (7)
  - AORTIC STENOSIS [None]
  - INTERMITTENT CLAUDICATION [None]
  - MALIGNANT MELANOMA [None]
  - NEOPLASM MALIGNANT [None]
  - PAIN IN EXTREMITY [None]
  - SKIN NECROSIS [None]
  - STENT PLACEMENT [None]
